FAERS Safety Report 18052693 (Version 1)
Quarter: 2020Q3

REPORT INFORMATION
  Report Type: Spontaneous
  Country: DE (occurrence: DE)
  Receive Date: 20200722
  Receipt Date: 20200722
  Transmission Date: 20201103
  Serious: Yes (Other)
  Sender: FDA-Public Use
  Company Number: DE-AUROBINDO-AUR-APL-2020-035625

PATIENT
  Age: 44 Year
  Sex: Male

DRUGS (9)
  1. LEVETIRACETAM. [Suspect]
     Active Substance: LEVETIRACETAM
     Indication: PRODUCT USED FOR UNKNOWN INDICATION
     Dosage: 500 MG AM AND 1000 MG PM
     Route: 065
  2. RISPERDAL [Concomitant]
     Active Substance: RISPERIDONE
     Indication: PRODUCT USED FOR UNKNOWN INDICATION
     Dosage: 1 MILLIGRAM, DAILY (0.5 MILLIGRAM, 2X/DAY (BID))
     Route: 065
  3. TAVOR [Concomitant]
     Indication: PRODUCT USED FOR UNKNOWN INDICATION
     Dosage: 2 MILLIGRAM, DAILY, 1.0 MILLIGRAM, 2X/DAY (BID)
     Route: 065
  4. ZONEGRAN [Concomitant]
     Active Substance: ZONISAMIDE
     Indication: PRODUCT USED FOR UNKNOWN INDICATION
     Dosage: 400 MILLIGRAM, DAILY (200 MILLIGRAM, 2X/DAY (BID))
     Route: 065
  5. BRIVIACT [Suspect]
     Active Substance: BRIVARACETAM
     Indication: PRODUCT USED FOR UNKNOWN INDICATION
     Dosage: 100 MILLIGRAM, DAILY (50 MILLIGRAM, 2X/DAY (BID))
     Route: 065
  6. ERGENYL CHRONO [Concomitant]
     Active Substance: VALPROIC ACID
     Indication: PRODUCT USED FOR UNKNOWN INDICATION
     Dosage: 2000 MILLIGRAM, DAILY (1000 MILLIGRAM, 2X/DAY (BID))
     Route: 065
  7. BRIVIACT [Suspect]
     Active Substance: BRIVARACETAM
     Dosage: 200 MILLIGRAM, DAILY (100 MILLIGRAM, 2X/DAY (BID))
     Route: 065
  8. LUMINAL [Concomitant]
     Active Substance: PHENOBARBITAL SODIUM
     Indication: PRODUCT USED FOR UNKNOWN INDICATION
     Dosage: 100 MILLIGRAM
     Route: 065
  9. LEVETIRACETAM. [Suspect]
     Active Substance: LEVETIRACETAM
     Dosage: 1500 MILLIGRAM, DAILY, 750 MILLIGRAM, 2X/DAY (BID)
     Route: 065

REACTIONS (8)
  - Anxiety [Unknown]
  - Aggression [Recovering/Resolving]
  - Panic attack [Unknown]
  - Irritability [Recovering/Resolving]
  - Drug ineffective [Unknown]
  - Off label use [Unknown]
  - Myoclonus [Unknown]
  - Contusion [Unknown]
